FAERS Safety Report 11831341 (Version 1)
Quarter: 2015Q4

REPORT INFORMATION
  Report Type: Report from Study
  Country: US (occurrence: US)
  Receive Date: 20151214
  Receipt Date: 20151214
  Transmission Date: 20160305
  Serious: Yes (Other)
  Sender: FDA-Public Use
  Company Number: US-AMGEN-USASL2015131144

PATIENT
  Age: 44 Year
  Sex: Male

DRUGS (2)
  1. METHYLPREDNISOLONE. [Suspect]
     Active Substance: METHYLPREDNISOLONE
     Indication: PRODUCT USED FOR UNKNOWN INDICATION
     Dosage: 20MG IN THE MORNING AND 4MG IN THE EVENING
     Route: 048
  2. ENBREL [Suspect]
     Active Substance: ETANERCEPT
     Indication: ANKYLOSING SPONDYLITIS
     Dosage: 50 MG, QWK
     Route: 065
     Dates: start: 20151021

REACTIONS (7)
  - Oral herpes [Unknown]
  - Laryngeal oedema [Unknown]
  - Fatigue [Unknown]
  - Injection site mass [Unknown]
  - Endodontic procedure [Unknown]
  - Costochondritis [Unknown]
  - Weight increased [Unknown]

NARRATIVE: CASE EVENT DATE: 2015
